FAERS Safety Report 7111998-5 (Version None)
Quarter: 2010Q4

REPORT INFORMATION
  Report Type: 
  Country: None (occurrence: None)
  Receive Date: 20101119
  Receipt Date: 20101110
  Transmission Date: 20110411
  Serious: No
  Sender: FDA-Public Use
  Company Number: US-PFIZER INC-2009311618

PATIENT
  Sex: Female
  Weight: 49.895 kg

DRUGS (3)
  1. NICOTROL [Suspect]
     Indication: SMOKING CESSATION THERAPY
     Dosage: 10 ML, AS NEEDED
     Route: 055
     Dates: start: 20060101
  2. NICOTROL [Suspect]
     Dosage: UNK
  3. NICOTROL [Suspect]
     Indication: SMOKING CESSATION THERAPY
     Dosage: UNK
     Dates: start: 20080101

REACTIONS (4)
  - DRUG INEFFECTIVE [None]
  - DYSGEUSIA [None]
  - MALAISE [None]
  - NASAL DISCOMFORT [None]
